FAERS Safety Report 19475530 (Version 1)
Quarter: 2021Q2

REPORT INFORMATION
  Report Type: Spontaneous
  Country: US (occurrence: US)
  Receive Date: 20210630
  Receipt Date: 20210630
  Transmission Date: 20210717
  Serious: No
  Sender: FDA-Public Use
  Company Number: US-GLAXOSMITHKLINE-US2021136136

PATIENT
  Age: 58 Year
  Sex: Female

DRUGS (2)
  1. METFORM [Concomitant]
     Active Substance: METFORMIN HYDROCHLORIDE
     Indication: DIABETES MELLITUS
     Dosage: UNK 500 MG
  2. BREO ELLIPTA [Suspect]
     Active Substance: FLUTICASONE FUROATE\VILANTEROL TRIFENATATE
     Indication: ASTHMA
     Dosage: 1 PUFF(S), QD IN MORNING
     Route: 055
     Dates: start: 201201

REACTIONS (2)
  - Fall [Unknown]
  - Spinal operation [Unknown]

NARRATIVE: CASE EVENT DATE: 201402
